FAERS Safety Report 5774923-5 (Version None)
Quarter: 2008Q2

REPORT INFORMATION
  Report Type: 
  Country: None (occurrence: None)
  Receive Date: 20080616
  Receipt Date: 20080616
  Transmission Date: 20081010
  Serious: Yes (Hospitalization)
  Sender: FDA-Public Use
  Company Number: None

PATIENT
  Age: 86 Year
  Sex: Male
  Weight: 78.47 kg

DRUGS (1)
  1. CIPRO IN DEXTROSE 5% [Suspect]
     Indication: URINARY TRACT INFECTION
     Dosage: 400 MG ONCE IV
     Route: 042
     Dates: start: 20080423, end: 20080423

REACTIONS (1)
  - ANAPHYLACTIC REACTION [None]
